FAERS Safety Report 8919843 (Version 1)
Quarter: 2012Q4

REPORT INFORMATION
  Report Type: 
  Country: US (occurrence: US)
  Receive Date: 20121121
  Receipt Date: 20121121
  Transmission Date: 20130627
  Serious: Yes (Hospitalization)
  Sender: FDA-Public Use
  Company Number: US-SANOFI-AVENTIS-2012SA082854

PATIENT

DRUGS (6)
  1. ZALTRAP [Suspect]
     Indication: METASTATIC COLON CANCER
     Route: 041
  2. ZALTRAP [Suspect]
     Indication: METASTATIC COLON CANCER
     Route: 041
  3. LEUCOVORIN [Suspect]
     Indication: METASTATIC COLON CANCER
     Route: 042
  4. 5 FU [Suspect]
     Indication: METASTATIC COLON CANCER
     Route: 042
  5. 5 FU [Suspect]
     Indication: METASTATIC COLON CANCER
     Route: 042
  6. IRINOTECAN [Suspect]
     Indication: METASTATIC COLON CANCER
     Route: 042

REACTIONS (2)
  - Colitis [Unknown]
  - Diarrhoea [Unknown]
